FAERS Safety Report 5849275-2 (Version None)
Quarter: 2008Q3

REPORT INFORMATION
  Report Type: 
  Country: None (occurrence: None)
  Receive Date: 20080819
  Receipt Date: 20071126
  Transmission Date: 20090109
  Serious: No
  Sender: FDA-Public Use
  Company Number: US-BAYER-200714912NA

PATIENT
  Sex: Female
  Weight: 34 kg

DRUGS (3)
  1. BETASERON [Suspect]
     Indication: RELAPSING-REMITTING MULTIPLE SCLEROSIS
     Dosage: TOTAL DAILY DOSE: 8 MIU
     Route: 058
     Dates: start: 19960101, end: 20070101
  2. ATIVAN [Concomitant]
     Dosage: TOTAL DAILY DOSE: 0.5 MG
  3. SYNTHROID [Concomitant]

REACTIONS (1)
  - INJECTION SITE RASH [None]
